FAERS Safety Report 6764857-1 (Version None)
Quarter: 2010Q2

REPORT INFORMATION
  Report Type: 
  Country: None (occurrence: None)
  Receive Date: 20100610
  Receipt Date: 20100608
  Transmission Date: 20101027
  Serious: Yes (Death)
  Sender: FDA-Public Use
  Company Number: IT-BRISTOL-MYERS SQUIBB COMPANY-14747653

PATIENT
  Age: 74 Year
  Sex: Female

DRUGS (7)
  1. COUMADIN [Suspect]
     Route: 048
     Dates: start: 20090501, end: 20090612
  2. ZOLOFT [Suspect]
     Route: 048
     Dates: start: 20090501, end: 20090612
  3. PANTOPRAZOLE [Concomitant]
     Route: 048
  4. LEVOTHYROXINE SODIUM [Concomitant]
     Route: 048
  5. COVERSYL [Concomitant]
     Route: 048
  6. TENORETIC 100 [Concomitant]
     Dosage: 100 HALF UNIT DOSE,
     Route: 048
  7. LORAZEPAM [Concomitant]
     Route: 048

REACTIONS (1)
  - HEPATIC FAILURE [None]
